FAERS Safety Report 25984149 (Version 1)
Quarter: 2025Q4

REPORT INFORMATION
  Report Type: Spontaneous
  Country: EU (occurrence: EU)
  Receive Date: 20251031
  Receipt Date: 20251031
  Transmission Date: 20260117
  Serious: Yes (Other)
  Sender: SANDOZ
  Company Number: EU-002147023-NVSC2023DE059687

PATIENT
  Age: 61 Year
  Sex: Female

DRUGS (11)
  1. CARBOPLATIN [Suspect]
     Active Substance: CARBOPLATIN
     Indication: HER2 mutant non-small cell lung cancer
     Dosage: UNK
     Route: 065
     Dates: start: 202005, end: 2020
  2. CARBOPLATIN [Suspect]
     Active Substance: CARBOPLATIN
     Indication: Lung adenocarcinoma
  3. CARBOPLATIN [Suspect]
     Active Substance: CARBOPLATIN
     Indication: Metastases to lung
  4. DOCETAXEL [Suspect]
     Active Substance: DOCETAXEL
     Indication: Lung adenocarcinoma
     Dosage: UNK
     Route: 065
     Dates: start: 202201
  5. PEMETREXED [Suspect]
     Active Substance: PEMETREXED
     Indication: Metastases to lung
     Dosage: UNK
     Route: 065
     Dates: start: 202005, end: 2020
  6. PEMETREXED [Suspect]
     Active Substance: PEMETREXED
     Indication: HER2 mutant non-small cell lung cancer
  7. PEMETREXED [Suspect]
     Active Substance: PEMETREXED
     Indication: Metastases to lung
  8. PEMBROLIZUMAB [Suspect]
     Active Substance: PEMBROLIZUMAB
     Indication: HER2 mutant non-small cell lung cancer
     Dosage: UNK
     Route: 065
     Dates: start: 202005, end: 2020
  9. PEMBROLIZUMAB [Suspect]
     Active Substance: PEMBROLIZUMAB
     Indication: Lung adenocarcinoma
  10. PEMBROLIZUMAB [Suspect]
     Active Substance: PEMBROLIZUMAB
     Indication: Metastases to lung
  11. RAMUCIRUMAB [Suspect]
     Active Substance: RAMUCIRUMAB
     Indication: Lung adenocarcinoma
     Dosage: UNK
     Route: 065
     Dates: start: 202201

REACTIONS (6)
  - Leukopenia [Unknown]
  - Epistaxis [Unknown]
  - Mucosal inflammation [Unknown]
  - Palmar-plantar erythrodysaesthesia syndrome [Unknown]
  - Nausea [Unknown]
  - Lacrimation increased [Unknown]

NARRATIVE: CASE EVENT DATE: 20220401
